FAERS Safety Report 9026707 (Version 2)
Quarter: 2013Q2

REPORT INFORMATION
  Report Type: Spontaneous
  Country: US (occurrence: None)
  Receive Date: 20120525
  Receipt Date: 20120827
  Transmission Date: 20140414
  Serious: Yes (Other)
  Sender: FDA-Public Use
  Company Number: 348870

PATIENT
  Age: 40 Year
  Sex: Female
  Weight: 105.7 kg

DRUGS (4)
  1. VICTOZA (LIRAGLUTIDE) SOLUTION FOR INJECTION, 6 MG/ML [Suspect]
     Indication: TYPE 2 DIABETES MELLITUS
     Route: 058
     Dates: start: 20120315, end: 20120318
  2. GLIMEPIRIDE (GLIMEPIRIDE) [Suspect]
     Indication: TYPE 2 DIABETES MELLITUS
     Route: 048
     Dates: end: 20120323
  3. GLUMETZA (METFORMIN HYDROCHLORIDE) [Suspect]
     Indication: TYPE 2 DIABETES MELLITUS
     Route: 048
     Dates: end: 20120323
  4. PROZAC (FLUOXETINE HYDROCHLORIDE) [Suspect]
     Indication: PRODUCT USED FOR UNKNOWN INDICATION
     Route: 048
     Dates: end: 20120323

REACTIONS (1)
  - Urticaria [None]
